FAERS Safety Report 8297210-2 (Version None)
Quarter: 2012Q2

REPORT INFORMATION
  Report Type: 
  Country: None (occurrence: None)
  Receive Date: 20120419
  Receipt Date: 20120410
  Transmission Date: 20120825
  Serious: Yes (Other)
  Sender: FDA-Public Use
  Company Number: JP-JNJFOC-20120403461

PATIENT

DRUGS (6)
  1. FENTANYL-100 [Suspect]
     Indication: MUCOUS MEMBRANE DISORDER
     Dosage: 1 PATCH OF 25UG/HR PLUS 2 PATCHES OF 12.5 UG/HR
     Route: 062
  2. FENTANYL-100 [Suspect]
     Dosage: 1 PATCH OF 25UG/HR PLUS 2 PATCHES OF 12.5 UG/HR
     Route: 062
  3. FENTANYL-100 [Suspect]
     Dosage: 3 PATCHES OF FENTANYL 25UG/HR
     Route: 062
  4. FENTANYL-100 [Suspect]
     Route: 062
     Dates: start: 20070101
  5. FENTANYL-100 [Suspect]
     Indication: CANCER PAIN
     Dosage: 3 PATCHES OF FENTANYL 25UG/HR
     Route: 062
  6. FENTANYL-100 [Suspect]
     Route: 062
     Dates: start: 20070101

REACTIONS (7)
  - DRUG DEPENDENCE [None]
  - INAPPROPRIATE SCHEDULE OF DRUG ADMINISTRATION [None]
  - DEPRESSION [None]
  - FEAR [None]
  - DRUG INEFFECTIVE [None]
  - DISCOMFORT [None]
  - DRUG DOSE OMISSION [None]
